FAERS Safety Report 25240706 (Version 1)
Quarter: 2025Q2

REPORT INFORMATION
  Report Type: Spontaneous
  Country: US (occurrence: US)
  Receive Date: 20250425
  Receipt Date: 20250425
  Transmission Date: 20250716
  Serious: No
  Sender: BIOGEN
  Company Number: US-BIOGEN-2025BI01305791

PATIENT
  Age: 40 Year
  Sex: Female

DRUGS (2)
  1. PLEGRIDY [Suspect]
     Active Substance: PEGINTERFERON BETA-1A
     Indication: Multiple sclerosis
     Route: 050
     Dates: start: 20210412
  2. NURTEC ODT [Concomitant]
     Active Substance: RIMEGEPANT SULFATE
     Route: 050

REACTIONS (3)
  - Drug dose omission by device [Not Recovered/Not Resolved]
  - Drug delivery system malfunction [Not Recovered/Not Resolved]
  - Injection site pain [Recovered/Resolved]

NARRATIVE: CASE EVENT DATE: 20250420
